FAERS Safety Report 20606818 (Version 1)
Quarter: 2022Q1

REPORT INFORMATION
  Report Type: Spontaneous
  Country: US (occurrence: US)
  Receive Date: 20220317
  Receipt Date: 20220317
  Transmission Date: 20220424
  Serious: No
  Sender: FDA-Public Use
  Company Number: US-ALKERMES INC.-ALK-2022-001223

PATIENT
  Age: 44 Year
  Sex: Male

DRUGS (4)
  1. VIVITROL [Suspect]
     Active Substance: NALTREXONE
     Indication: Alcoholism
     Dosage: 380 MILLIGRAM, QMO
     Route: 030
     Dates: start: 20220311
  2. VIVITROL [Suspect]
     Active Substance: NALTREXONE
     Dosage: 380 MILLIGRAM, QMO
     Route: 030
     Dates: start: 202202, end: 202202
  3. VIVITROL [Suspect]
     Active Substance: NALTREXONE
     Dosage: 380 MILLIGRAM, QMO
     Route: 030
     Dates: start: 202201, end: 202201
  4. VIVITROL [Suspect]
     Active Substance: NALTREXONE
     Dosage: 380 MILLIGRAM, QMO
     Route: 030
     Dates: start: 20190516, end: 20190516

REACTIONS (4)
  - Incorrect dose administered by product [Not Recovered/Not Resolved]
  - Injection site reaction [Not Recovered/Not Resolved]
  - Injection site scar [Not Recovered/Not Resolved]
  - Syringe issue [Recovered/Resolved]

NARRATIVE: CASE EVENT DATE: 20220101
